FAERS Safety Report 17162493 (Version 3)
Quarter: 2020Q1

REPORT INFORMATION
  Report Type: Spontaneous
  Country: US (occurrence: US)
  Receive Date: 20191217
  Receipt Date: 20200317
  Transmission Date: 20200409
  Serious: Yes (Other)
  Sender: FDA-Public Use
  Company Number: US-GILEAD-2019-0442861

PATIENT
  Sex: Male
  Weight: 107.03 kg

DRUGS (45)
  1. BIKTARVY [Concomitant]
     Active Substance: BICTEGRAVIR SODIUM\EMTRICITABINE\TENOFOVIR ALAFENAMIDE FUMARATE
  2. ALBUTEROL SULFATE. [Concomitant]
     Active Substance: ALBUTEROL SULFATE
  3. KETOCONAZOLE. [Concomitant]
     Active Substance: KETOCONAZOLE
  4. TESTOSTERONE CYPIONATE. [Concomitant]
     Active Substance: TESTOSTERONE CYPIONATE
  5. ZOLOFT [Concomitant]
     Active Substance: SERTRALINE HYDROCHLORIDE
  6. SUSTIVA [Concomitant]
     Active Substance: EFAVIRENZ
  7. CHERATUSSIN AC [Concomitant]
     Active Substance: CODEINE PHOSPHATE\GUAIFENESIN
  8. HYDROCODONE/ACETAMINOPHEN [Concomitant]
     Active Substance: ACETAMINOPHEN\HYDROCODONE
  9. BUPROPION. [Concomitant]
     Active Substance: BUPROPION
  10. NYSTATIN. [Concomitant]
     Active Substance: NYSTATIN
  11. DIFLUCAN [Concomitant]
     Active Substance: FLUCONAZOLE
  12. ETHAMBUTOL [Concomitant]
     Active Substance: ETHAMBUTOL HYDROCHLORIDE
  13. KALETRA [Concomitant]
     Active Substance: LOPINAVIR\RITONAVIR
  14. RANITIDINE. [Concomitant]
     Active Substance: RANITIDINE
  15. NICODERM CQ [Concomitant]
     Active Substance: NICOTINE
  16. CYCLOBENZAPRINE. [Concomitant]
     Active Substance: CYCLOBENZAPRINE
  17. NORVIR [Concomitant]
     Active Substance: RITONAVIR
  18. ROPINIROLE. [Concomitant]
     Active Substance: ROPINIROLE
  19. TRIAMCINOLONE ACETONIDE ACETATE [Concomitant]
     Active Substance: TRIAMCINOLONE ACETONIDE
  20. MYCOBUTIN [Concomitant]
     Active Substance: RIFABUTIN
  21. ZITHROMAX [Concomitant]
     Active Substance: AZITHROMYCIN DIHYDRATE
  22. CEFUROXIME. [Concomitant]
     Active Substance: CEFUROXIME
  23. MORPHINE SULFATE. [Concomitant]
     Active Substance: MORPHINE SULFATE
  24. AMBISOME [Suspect]
     Active Substance: AMPHOTERICIN B
     Indication: PRODUCT USED FOR UNKNOWN INDICATION
     Dosage: UNK
     Route: 065
     Dates: start: 2008
  25. PREPOPIK [Concomitant]
     Active Substance: ANHYDROUS CITRIC ACID\MAGNESIUM OXIDE\SODIUM PICOSULFATE
  26. CLINDAMYCIN. [Concomitant]
     Active Substance: CLINDAMYCIN
  27. LORATADINE. [Concomitant]
     Active Substance: LORATADINE
  28. OXYCODONE [Concomitant]
     Active Substance: OXYCODONE
  29. ONDANSETRON [Concomitant]
     Active Substance: ONDANSETRON
  30. SILDENAFIL. [Concomitant]
     Active Substance: SILDENAFIL
  31. BENADRYL [Concomitant]
     Active Substance: DIPHENHYDRAMINE HYDROCHLORIDE
  32. VITAMIN D NOS [Concomitant]
     Active Substance: VITAMIN D NOS
  33. ALLEGRA-D [Concomitant]
     Active Substance: FEXOFENADINE\PSEUDOEPHEDRINE
  34. ENDOCET [Concomitant]
     Active Substance: ACETAMINOPHEN\OXYCODONE HYDROCHLORIDE
  35. CELEBREX [Concomitant]
     Active Substance: CELECOXIB
  36. OMEPRAZOLE. [Concomitant]
     Active Substance: OMEPRAZOLE
  37. ZOLPIDEM [Concomitant]
     Active Substance: ZOLPIDEM TARTRATE
  38. TRUVADA [Suspect]
     Active Substance: EMTRICITABINE\TENOFOVIR DISOPROXIL FUMARATE
     Indication: HIV INFECTION
     Dosage: 1 DOSAGE FORM, QD
     Route: 048
     Dates: start: 200411, end: 201701
  39. VIREAD [Suspect]
     Active Substance: TENOFOVIR DISOPROXIL FUMARATE
     Indication: HIV INFECTION
     Dosage: UNK
     Route: 048
     Dates: start: 200408, end: 200411
  40. DESCOVY [Concomitant]
     Active Substance: EMTRICITABINE\TENOFOVIR ALAFENAMIDE FUMARATE
     Dosage: UNK
     Dates: start: 201702
  41. REYATAZ [Concomitant]
     Active Substance: ATAZANAVIR SULFATE
  42. PROAIR HFA [Concomitant]
     Active Substance: ALBUTEROL SULFATE
  43. LEVITRA [Concomitant]
     Active Substance: VARDENAFIL HYDROCHLORIDE
  44. DOCUSATE SODIUM. [Concomitant]
     Active Substance: DOCUSATE SODIUM
  45. BIAXIN [Concomitant]
     Active Substance: CLARITHROMYCIN

REACTIONS (8)
  - Chronic kidney disease [Not Recovered/Not Resolved]
  - Acute kidney injury [Unknown]
  - Anhedonia [Unknown]
  - Osteopenia [Unknown]
  - Anxiety [Unknown]
  - Pain [Unknown]
  - Emotional distress [Unknown]
  - Economic problem [Unknown]

NARRATIVE: CASE EVENT DATE: 2008
